FAERS Safety Report 19188301 (Version 2)
Quarter: 2023Q2

REPORT INFORMATION
  Report Type: Spontaneous
  Country: KR (occurrence: KR)
  Receive Date: 20210427
  Receipt Date: 20230428
  Transmission Date: 20230721
  Serious: Yes (Hospitalization, Other)
  Sender: FDA-Public Use
  Company Number: KR-JNJFOC-20210440529

PATIENT
  Age: 10 Month
  Sex: Male

DRUGS (1)
  1. FENTANYL [Suspect]
     Active Substance: FENTANYL
     Indication: Product used for unknown indication
     Route: 048

REACTIONS (3)
  - Toxic leukoencephalopathy [Recovering/Resolving]
  - Lennox-Gastaut syndrome [Recovering/Resolving]
  - Accidental exposure to product [Unknown]
